FAERS Safety Report 5260760-7 (Version None)
Quarter: 2007Q1

REPORT INFORMATION
  Report Type: 
  Country: None (occurrence: None)
  Receive Date: 20070309
  Receipt Date: 20070228
  Transmission Date: 20070707
  Serious: Yes (Hospitalization)
  Sender: FDA-Public Use
  Company Number: JP-MERCK-0702USA00508

PATIENT
  Age: 79 Year
  Sex: Male

DRUGS (8)
  1. PEPCID RPD [Suspect]
     Route: 048
  2. BUFFERIN [Concomitant]
     Route: 048
  3. DIHYDROXYALUMINUM AMINOACETATE [Concomitant]
     Route: 065
  4. MAGNESIUM CARBONATE [Concomitant]
     Route: 048
  5. AMARYL [Concomitant]
     Route: 048
  6. ADALAT [Concomitant]
     Route: 048
  7. MUCOSTA [Concomitant]
     Route: 048
  8. LIPITOR [Suspect]
     Indication: HYPERLIPIDAEMIA
     Route: 065
     Dates: start: 20061219, end: 20070126

REACTIONS (1)
  - ERYTHEMA MULTIFORME [None]
